FAERS Safety Report 14897414 (Version 1)
Quarter: 2018Q2

REPORT INFORMATION
  Report Type: Report from Study
  Country: CA (occurrence: CA)
  Receive Date: 20180515
  Receipt Date: 20180515
  Transmission Date: 20180711
  Serious: Yes (Other)
  Sender: FDA-Public Use
  Company Number: CA-GLAXOSMITHKLINE-CA2017GSK116076

PATIENT
  Age: 61 Year
  Sex: Female

DRUGS (1)
  1. MEPOLIZUMAB [Suspect]
     Active Substance: MEPOLIZUMAB
     Indication: ASTHMA
     Dosage: 100 MG, Z(MONTHLY)
     Route: 042

REACTIONS (19)
  - Pain [Unknown]
  - Eczema [Not Recovered/Not Resolved]
  - Scratch [Not Recovered/Not Resolved]
  - Erythema [Unknown]
  - Paraesthesia [Not Recovered/Not Resolved]
  - Hypoglycaemia [Unknown]
  - Swelling [Not Recovered/Not Resolved]
  - Eye haemorrhage [Unknown]
  - Pruritus [Not Recovered/Not Resolved]
  - Herpes zoster [Unknown]
  - Malaise [Unknown]
  - Scar [Not Recovered/Not Resolved]
  - Suffocation feeling [Unknown]
  - Rash [Recovering/Resolving]
  - Sinusitis [Recovering/Resolving]
  - Blister [Not Recovered/Not Resolved]
  - Urticaria [Unknown]
  - Dermatitis [Unknown]
  - Acarodermatitis [Unknown]

NARRATIVE: CASE EVENT DATE: 20171001
